FAERS Safety Report 4527792-5 (Version None)
Quarter: 2004Q4

REPORT INFORMATION
  Report Type: 
  Country: None (occurrence: None)
  Receive Date: 20041123
  Receipt Date: 20040116
  Transmission Date: 20050328
  Serious: Yes (Hospitalization)
  Sender: FDA-Public Use
  Company Number: ATO-04-0058(0)

PATIENT
  Age: 45 Year
  Sex: Female

DRUGS (1)
  1. TRISENOX [Suspect]
     Indication: ACUTE PROMYELOCYTIC LEUKAEMIA
     Dosage: (0.15 MG/KG,DAILY),IVI
     Dates: start: 20031231

REACTIONS (1)
  - RETINOIC ACID SYNDROME [None]
